FAERS Safety Report 6947988-2 (Version None)
Quarter: 2010Q3

REPORT INFORMATION
  Report Type: 
  Country: None (occurrence: None)
  Receive Date: 20100825
  Receipt Date: 20100811
  Transmission Date: 20110219
  Serious: Yes (Other)
  Sender: FDA-Public Use
  Company Number: 20100374

PATIENT
  Age: 37 Year
  Sex: Female

DRUGS (2)
  1. MAGNESIUM SULFATE [Suspect]
     Indication: POSTPARTUM DISORDER
     Dosage: 2-4 GRAMS/HOUR, INTRAVENOUS
     Route: 042
  2. MAGNESIUM SULFATE [Suspect]
     Indication: PRE-ECLAMPSIA
     Dosage: 2-4 GRAMS/HOUR, INTRAVENOUS
     Route: 042

REACTIONS (4)
  - BLOOD MAGNESIUM INCREASED [None]
  - BLOOD PARATHYROID HORMONE INCREASED [None]
  - ELECTROCARDIOGRAM QT PROLONGED [None]
  - HYPOCALCAEMIA [None]
